FAERS Safety Report 10412262 (Version 1)
Quarter: 2014Q2

REPORT INFORMATION
  Report Type: Spontaneous
  Country: US (occurrence: None)
  Receive Date: 20140604
  Receipt Date: 20140604
  Transmission Date: 20141212
  Serious: Yes (Other)
  Sender: FDA-Public Use
  Company Number: 163-POMAL-14023985

PATIENT
  Sex: Female

DRUGS (2)
  1. POMALYST (POMALIDOMIDE) (2 MILLIGRAM, CAPSULES) [Suspect]
     Indication: PLASMA CELL MYELOMA
     Route: 048
     Dates: start: 201311
  2. COUMADIN (WARFARIN SODIUM) [Concomitant]

REACTIONS (2)
  - Thrombosis [None]
  - Oedema peripheral [None]
